FAERS Safety Report 6189139-0 (Version None)
Quarter: 2009Q2

REPORT INFORMATION
  Report Type: 
  Country: None (occurrence: None)
  Receive Date: 20090513
  Receipt Date: 20090225
  Transmission Date: 20091009
  Serious: No
  Sender: FDA-Public Use
  Company Number: A0770986A

PATIENT
  Sex: Female

DRUGS (1)
  1. TREXIMET [Suspect]
     Indication: TENSION HEADACHE
     Dates: start: 20090225

REACTIONS (2)
  - HEART RATE DECREASED [None]
  - PAIN IN JAW [None]
